FAERS Safety Report 7266650-2 (Version None)
Quarter: 2011Q1

REPORT INFORMATION
  Report Type: 
  Country: None (occurrence: None)
  Receive Date: 20110201
  Receipt Date: 20110125
  Transmission Date: 20110831
  Serious: Yes (Other)
  Sender: FDA-Public Use
  Company Number: FR-BIOGENIDEC-2011BI001785

PATIENT
  Age: 52 Year
  Sex: Female

DRUGS (4)
  1. ENALAPRIL MALEATE [Concomitant]
     Indication: HYPERTENSION
  2. AVONEX [Suspect]
     Indication: MULTIPLE SCLEROSIS
     Route: 030
     Dates: start: 20110114
  3. OROCAL [Concomitant]
     Indication: OSTEOPOROSIS
  4. ACLASTA [Concomitant]
     Indication: OSTEOPOROSIS
     Route: 042

REACTIONS (1)
  - INFLUENZA LIKE ILLNESS [None]
